FAERS Safety Report 10268656 (Version 1)
Quarter: 2014Q2

REPORT INFORMATION
  Report Type: Spontaneous
  Country: US (occurrence: None)
  Receive Date: 20140627
  Receipt Date: 20140627
  Transmission Date: 20141212
  Serious: Yes (Other)
  Sender: FDA-Public Use
  Company Number: None

PATIENT
  Age: 38 Year
  Sex: Female
  Weight: 49.9 kg

DRUGS (1)
  1. OIL FREE ACNE WASH PINK GRAPEFRU [Suspect]
     Indication: ACNE
     Dates: start: 20140620, end: 20140620

REACTIONS (2)
  - Swelling face [None]
  - Skin burning sensation [None]
